FAERS Safety Report 7421252-X (Version None)
Quarter: 2011Q2

REPORT INFORMATION
  Report Type: 
  Country: None (occurrence: None)
  Receive Date: 20110418
  Receipt Date: 20110408
  Transmission Date: 20111010
  Serious: Yes (Life-Threatening, Hospitalization)
  Sender: FDA-Public Use
  Company Number: JP-PFIZER INC-2010180045

PATIENT
  Age: 67 Year
  Sex: Male
  Weight: 60 kg

DRUGS (4)
  1. CISPLATIN [Suspect]
     Indication: NON-SMALL CELL LUNG CANCER
     Dosage: 100 MG/BODY (60 MG/M2)
     Route: 041
     Dates: start: 20100209, end: 20100209
  2. LOPEMIN [Suspect]
     Indication: DIARRHOEA
     Dosage: 1 MG, 3X/DAY
     Route: 048
     Dates: start: 20110211, end: 20110218
  3. MAXIPIME [Concomitant]
     Indication: PYREXIA
     Dosage: 2 G, 2X/DAY
     Route: 041
     Dates: start: 20100217, end: 20100219
  4. CAMPTOSAR [Suspect]
     Indication: NON-SMALL CELL LUNG CANCER
     Dosage: 100 MG/BODY (60 MG/M2)
     Route: 041
     Dates: start: 20100209, end: 20100209

REACTIONS (5)
  - LEUKOPENIA [None]
  - PYREXIA [None]
  - NEUTROPENIA [None]
  - DIARRHOEA [None]
  - ILEUS PARALYTIC [None]
